FAERS Safety Report 8425927-5 (Version None)
Quarter: 2012Q2

REPORT INFORMATION
  Report Type: 
  Country: None (occurrence: None)
  Receive Date: 20120611
  Receipt Date: 20120531
  Transmission Date: 20120825
  Serious: Yes (Other)
  Sender: FDA-Public Use
  Company Number: JP-VERTEX PHARMACEUTICALS INC.-AE-2012-008340

PATIENT
  Age: 67 Year
  Sex: Female

DRUGS (6)
  1. REBETOL [Concomitant]
     Indication: HEPATITIS C
     Route: 048
     Dates: start: 20120314, end: 20120425
  2. TELAVIC (TELAPREVIR) [Suspect]
     Indication: HEPATITIS C
     Route: 048
     Dates: start: 20120314, end: 20120522
  3. REBETOL [Concomitant]
     Route: 048
     Dates: start: 20120426, end: 20120522
  4. PEGINTERFERON ALFA-2B [Concomitant]
     Indication: HEPATITIS C
     Route: 051
     Dates: start: 20120314, end: 20120522
  5. ALLOPURINOL [Concomitant]
     Route: 048
     Dates: start: 20120319
  6. PRIMPERAN TAB [Concomitant]
     Route: 048
     Dates: start: 20120326

REACTIONS (2)
  - WEIGHT DECREASED [None]
  - DECREASED APPETITE [None]
